FAERS Safety Report 16897537 (Version 1)
Quarter: 2019Q4

REPORT INFORMATION
  Report Type: Report from Study
  Country: US (occurrence: US)
  Receive Date: 20191009
  Receipt Date: 20191009
  Transmission Date: 20200122
  Serious: No
  Sender: FDA-Public Use
  Company Number: US-EMD SERONO-9110504

PATIENT
  Sex: Female

DRUGS (1)
  1. MAVENCLAD [Suspect]
     Active Substance: CLADRIBINE
     Indication: MULTIPLE SCLEROSIS
     Dosage: FIRST MONTH THERAPY: ONE TABLET (EACH OF 10 MG) ON DAYS 1 TO 5.
     Route: 048
     Dates: start: 20190729, end: 20190802

REACTIONS (1)
  - Memory impairment [Unknown]
